FAERS Safety Report 25730979 (Version 2)
Quarter: 2025Q3

REPORT INFORMATION
  Report Type: Report from Study
  Country: US (occurrence: US)
  Receive Date: 20250827
  Receipt Date: 20250924
  Transmission Date: 20251020
  Serious: Yes (Other)
  Sender: MALLINCKRODT
  Company Number: US-MALLINCKRODT-MNK202505165

PATIENT
  Age: 79 Year
  Sex: Female

DRUGS (1)
  1. CORTICOTROPIN [Suspect]
     Active Substance: CORTICOTROPIN
     Indication: Iridocyclitis
     Route: 058
     Dates: start: 202508

REACTIONS (7)
  - Eye laser surgery [Unknown]
  - Anxiety [Unknown]
  - Blood pressure increased [Unknown]
  - Blood glucose increased [Recovered/Resolved]
  - Insomnia [Unknown]
  - Irritability [Unknown]
  - Erythema [Recovered/Resolved]

NARRATIVE: CASE EVENT DATE: 20250101
